FAERS Safety Report 11949254 (Version 3)
Quarter: 2016Q1

REPORT INFORMATION
  Report Type: Spontaneous
  Country: US (occurrence: None)
  Receive Date: 20160125
  Receipt Date: 20160205
  Transmission Date: 20160526
  Serious: Yes (Other)
  Sender: FDA-Public Use
  Company Number: ADR-2015-01153

PATIENT
  Age: 45 Year
  Sex: Female

DRUGS (1)
  1. GABLOFEN [Suspect]
     Active Substance: BACLOFEN
     Indication: MUSCLE SPASTICITY
     Dosage: 1249.6 MCG/DAY

REACTIONS (12)
  - Headache [None]
  - Device malfunction [None]
  - Sensory disturbance [None]
  - Oedema peripheral [None]
  - Back pain [None]
  - Underdose [None]
  - No adverse event [None]
  - Withdrawal syndrome [None]
  - Pain [None]
  - Muscle spasticity [None]
  - Localised oedema [None]
  - Procedural haemorrhage [None]
